FAERS Safety Report 6793359-1 (Version None)
Quarter: 2010Q2

REPORT INFORMATION
  Report Type: 
  Country: None (occurrence: None)
  Receive Date: 20100624
  Receipt Date: 20100205
  Transmission Date: 20101027
  Serious: Yes (Other)
  Sender: FDA-Public Use
  Company Number: US-MYLANLABS-2009S1022019

PATIENT
  Age: 27 Year
  Sex: Male
  Weight: 103.87 kg

DRUGS (9)
  1. CLOZAPINE [Suspect]
     Indication: SCHIZOAFFECTIVE DISORDER
     Route: 048
     Dates: start: 20091118, end: 20100105
  2. CLOZAPINE [Suspect]
     Route: 048
     Dates: start: 20100107, end: 20100101
  3. CLOZAPINE [Suspect]
     Route: 048
     Dates: start: 20100101
  4. VALPROIC ACID [Suspect]
     Indication: SCHIZOAFFECTIVE DISORDER
     Dates: start: 20091102, end: 20100101
  5. VALPROIC ACID [Suspect]
     Dates: start: 20100101
  6. PRILOSEC [Concomitant]
  7. BENZTROPINE MESYLATE [Concomitant]
     Indication: AKATHISIA
     Route: 048
     Dates: start: 20091102
  8. CHLORPROMAZINE [Concomitant]
     Indication: AGITATION
     Route: 048
     Dates: start: 20091231, end: 20100105
  9. PANTOPRAZOLE [Concomitant]
     Dates: start: 20091126, end: 20100107

REACTIONS (1)
  - GRANULOCYTOPENIA [None]
